FAERS Safety Report 11640128 (Version 1)
Quarter: 2015Q4

REPORT INFORMATION
  Report Type: Spontaneous
  Country: SE (occurrence: SE)
  Receive Date: 20151019
  Receipt Date: 20151019
  Transmission Date: 20160304
  Serious: Yes (Other)
  Sender: FDA-Public Use
  Company Number: SE-TEVA-602123ISR

PATIENT
  Age: 45 Year
  Sex: Male

DRUGS (1)
  1. LOSARTAN. [Suspect]
     Active Substance: LOSARTAN
     Route: 048

REACTIONS (2)
  - Eczema [Not Recovered/Not Resolved]
  - Abscess [Not Recovered/Not Resolved]
